FAERS Safety Report 8471112-0 (Version None)
Quarter: 2012Q2

REPORT INFORMATION
  Report Type: 
  Country: None (occurrence: None)
  Receive Date: 20120627
  Receipt Date: 20120621
  Transmission Date: 20120825
  Serious: Yes (Life-Threatening, Hospitalization, Other)
  Sender: FDA-Public Use
  Company Number: JP-PFIZER INC-2012139100

PATIENT
  Age: 47 Year
  Sex: Male
  Weight: 60 kg

DRUGS (2)
  1. ROHYPNOL [Suspect]
     Indication: DEPRESSION
     Dosage: 1 MG/DAY
     Route: 048
     Dates: start: 20120604, end: 20120607
  2. ZOLOFT [Suspect]
     Indication: DEPRESSION
     Dosage: 25 MG, 2X/DAY
     Route: 048
     Dates: start: 20120604, end: 20120607

REACTIONS (4)
  - INAPPROPRIATE ANTIDIURETIC HORMONE SECRETION [None]
  - WATER INTOXICATION [None]
  - RHABDOMYOLYSIS [None]
  - CONVULSION [None]
